FAERS Safety Report 4387739-1 (Version None)
Quarter: 2004Q2

REPORT INFORMATION
  Report Type: 
  Country: None (occurrence: None)
  Receive Date: 20040630
  Receipt Date: 20040624
  Transmission Date: 20050107
  Serious: Yes (Hospitalization)
  Sender: FDA-Public Use
  Company Number: JP-BRISTOL-MYERS SQUIBB COMPANY-12623625

PATIENT
  Age: 59 Year
  Sex: Female

DRUGS (1)
  1. PACLITAXEL [Suspect]
     Indication: BREAST CANCER
     Route: 042
     Dates: start: 20040609, end: 20040609

REACTIONS (3)
  - BLOOD PRESSURE DECREASED [None]
  - HYPOXIA [None]
  - LOSS OF CONSCIOUSNESS [None]
